FAERS Safety Report 5104235-4 (Version None)
Quarter: 2006Q3

REPORT INFORMATION
  Report Type: 
  Country: None (occurrence: None)
  Receive Date: 20060911
  Receipt Date: 20060824
  Transmission Date: 20061208
  Serious: Yes (Other)
  Sender: FDA-Public Use
  Company Number: MEDI-0004742

PATIENT
  Age: 12 Month
  Sex: Male

DRUGS (5)
  1. SYNAGIS [Suspect]
     Indication: ANTIVIRAL PROPHYLAXIS
     Dosage: 1 IN 1 M, INTRMUSCULAR (SEE IMAGE)
     Route: 030
     Dates: start: 20051018, end: 20060210
  2. SYNAGIS [Suspect]
     Indication: ANTIVIRAL PROPHYLAXIS
     Dosage: 1 IN 1 M, INTRMUSCULAR (SEE IMAGE)
     Route: 030
     Dates: start: 20051018
  3. SYNAGIS [Suspect]
     Indication: ANTIVIRAL PROPHYLAXIS
     Dosage: 1 IN 1 M, INTRMUSCULAR (SEE IMAGE)
     Route: 030
     Dates: start: 20051118
  4. SYNAGIS [Suspect]
     Indication: ANTIVIRAL PROPHYLAXIS
     Dosage: 1 IN 1 M, INTRMUSCULAR (SEE IMAGE)
     Route: 030
     Dates: start: 20051216
  5. SYNAGIS [Suspect]
     Indication: ANTIVIRAL PROPHYLAXIS
     Dosage: 1 IN 1 M, INTRMUSCULAR (SEE IMAGE)
     Route: 030
     Dates: start: 20060113

REACTIONS (1)
  - URINARY TRACT INFECTION [None]
